FAERS Safety Report 9379057 (Version 1)
Quarter: 2013Q2

REPORT INFORMATION
  Report Type: Spontaneous
  Country: US (occurrence: None)
  Receive Date: 20130626
  Receipt Date: 20130626
  Transmission Date: 20140414
  Serious: Yes (Other)
  Sender: FDA-Public Use
  Company Number: 2013P1006945

PATIENT
  Age: 76 Year
  Sex: Male
  Weight: 88 kg

DRUGS (4)
  1. AZO STANDARD [Suspect]
     Indication: URINARY TRACT INFECTION
     Dosage: 2 CAPSULES
     Route: 048
     Dates: start: 20130530, end: 20130606
  2. TRAZODONE [Concomitant]
  3. OMEPRAZOLE [Concomitant]
  4. UNSPECIFIED VITAMINS [Concomitant]

REACTIONS (3)
  - Haematochezia [None]
  - Chromaturia [None]
  - Off label use [None]
